FAERS Safety Report 14978831 (Version 2)
Quarter: 2018Q2

REPORT INFORMATION
  Report Type: Spontaneous
  Country: US (occurrence: US)
  Receive Date: 20180606
  Receipt Date: 20180615
  Transmission Date: 20180711
  Serious: Yes (Life-Threatening, Hospitalization, Other)
  Sender: FDA-Public Use
  Company Number: US-APOTEX-2018AP015449

PATIENT
  Age: 73 Year
  Sex: Female

DRUGS (1)
  1. TRIAMTERENE/HYDROCHLOROTHIAZIDE [Suspect]
     Active Substance: HYDROCHLOROTHIAZIDE\TRIAMTERENE
     Indication: PERIPHERAL SWELLING
     Dosage: UNK
     Route: 065

REACTIONS (10)
  - Hypoxia [Recovering/Resolving]
  - Leukocytosis [Unknown]
  - Lactic acidosis [Recovered/Resolved]
  - Paralysis [Unknown]
  - Procalcitonin increased [Unknown]
  - Renal tubular necrosis [Recovering/Resolving]
  - Immune-mediated adverse reaction [Recovering/Resolving]
  - Pulmonary oedema [Recovering/Resolving]
  - Hypotension [Recovered/Resolved]
  - Leukopenia [Recovered/Resolved]
